FAERS Safety Report 4538565-1 (Version None)
Quarter: 2004Q4

REPORT INFORMATION
  Report Type: 
  Country: None (occurrence: None)
  Receive Date: 20041222
  Receipt Date: 20041217
  Transmission Date: 20050328
  Serious: Yes (Hospitalization)
  Sender: FDA-Public Use
  Company Number: HQWYE012325OCT04

PATIENT
  Age: 50 Year
  Sex: Male

DRUGS (9)
  1. RAPAMUNE [Suspect]
     Indication: PROPHYLAXIS AGAINST TRANSPLANT REJECTION
     Dosage: SEE IMAGE
     Route: 048
     Dates: start: 20021211, end: 20040101
  2. RAPAMUNE [Suspect]
     Indication: PROPHYLAXIS AGAINST TRANSPLANT REJECTION
     Dosage: SEE IMAGE
     Route: 048
     Dates: start: 20040101, end: 20041102
  3. MYCOPHENOLATE MOFETIL              (MYCOPHENOLATE MOFETIL) [Concomitant]
  4. ACETYLSALICYLIC ACID SRT [Concomitant]
  5. CLOPIDOGREL           (CLOPIDOGREL) [Concomitant]
  6. AMLODIPINE [Concomitant]
  7. HYDROCHLOROTHIAZIDE [Concomitant]
  8. ALLOPURINOL [Concomitant]
  9. ENALAPRIL            (ENALAPRIL) [Concomitant]

REACTIONS (7)
  - CORONARY ARTERIAL STENT INSERTION [None]
  - DRUG RESISTANCE [None]
  - DYSPNOEA [None]
  - HYDROCELE [None]
  - INFLAMMATION [None]
  - OEDEMA [None]
  - PYREXIA [None]
